FAERS Safety Report 16321771 (Version 1)
Quarter: 2019Q2

REPORT INFORMATION
  Report Type: Spontaneous
  Country: JP (occurrence: JP)
  Receive Date: 20190516
  Receipt Date: 20190516
  Transmission Date: 20190711
  Serious: Yes (Other)
  Sender: FDA-Public Use
  Company Number: JP-ENDO PHARMACEUTICALS INC-2019-104557

PATIENT
  Age: 26 Year
  Sex: Female

DRUGS (1)
  1. PHENYLEPHRINE HYDROCHLORIDE. [Suspect]
     Active Substance: PHENYLEPHRINE HYDROCHLORIDE
     Indication: VASOCONSTRICTION
     Dosage: 5 G, SINGLE
     Route: 042

REACTIONS (2)
  - Interventional procedure [Recovered/Resolved]
  - Vasospasm [Recovered/Resolved]
